FAERS Safety Report 20782932 (Version 1)
Quarter: 2022Q2

REPORT INFORMATION
  Report Type: Spontaneous
  Country: US (occurrence: US)
  Receive Date: 20220504
  Receipt Date: 20220504
  Transmission Date: 20220721
  Serious: Yes (Other)
  Sender: FDA-Public Use
  Company Number: US-THERATECHNOLOGIES INC.-2022-THE-IBA-000098

PATIENT
  Sex: Male

DRUGS (1)
  1. TROGARZO [Suspect]
     Active Substance: IBALIZUMAB-UIYK
     Indication: HIV infection
     Dosage: 800 MG EVERY 2 WEEKS
     Route: 042
     Dates: start: 201902

REACTIONS (1)
  - Coma [Recovered/Resolved]
